FAERS Safety Report 11920191 (Version 2)
Quarter: 2016Q2

REPORT INFORMATION
  Report Type: Report from Study
  Country: NL (occurrence: NL)
  Receive Date: 20160115
  Receipt Date: 20160412
  Transmission Date: 20160815
  Serious: Yes (Death, Other)
  Sender: FDA-Public Use
  Company Number: NL-AMGEN-NLDSL2016003800

PATIENT
  Age: 66 Year
  Sex: Male

DRUGS (1)
  1. XGEVA [Suspect]
     Active Substance: DENOSUMAB
     Indication: SPINAL COMPRESSION FRACTURE
     Dosage: 120 MG (70MG/ML, 1.7ML), Q4WK
     Route: 058
     Dates: start: 20151116

REACTIONS (2)
  - Death [Fatal]
  - Anaemia [Unknown]
